FAERS Safety Report 4323309-9 (Version None)
Quarter: 2004Q1

REPORT INFORMATION
  Report Type: 
  Country: None (occurrence: None)
  Receive Date: 20040323
  Receipt Date: 20031201
  Transmission Date: 20041129
  Serious: No
  Sender: FDA-Public Use
  Company Number: M03-341-175

PATIENT
  Age: 62 Year
  Sex: Male
  Weight: 92 kg

DRUGS (1)
  1. VELCADE [Suspect]
     Indication: MULTIPLE MYELOMA
     Dosage: 2.8 MG BIW: INTRAVENOUS BOLUS
     Route: 040
     Dates: start: 20030902

REACTIONS (2)
  - NEUROPATHY PERIPHERAL [None]
  - PAIN [None]
